FAERS Safety Report 7056308-7 (Version None)
Quarter: 2010Q4

REPORT INFORMATION
  Report Type: 
  Country: None (occurrence: None)
  Receive Date: 20101021
  Receipt Date: 20101014
  Transmission Date: 20110411
  Serious: Yes (Hospitalization)
  Sender: FDA-Public Use
  Company Number: DE-ELI_LILLY_AND_COMPANY-DE200907006298

PATIENT
  Sex: Female
  Weight: 58 kg

DRUGS (8)
  1. PEMETREXED [Suspect]
     Indication: NON-SMALL CELL LUNG CANCER
     Dosage: 500 MG/M2, ON D1 EVERY 21 DAYS
     Route: 042
     Dates: start: 20090520
  2. CISPLATIN [Suspect]
     Indication: NON-SMALL CELL LUNG CANCER
     Dosage: 75 MG/M2, ON D1 EVERY 21 DAYS
     Route: 042
     Dates: start: 20090520
  3. FOLIC ACID [Concomitant]
     Indication: PROPHYLAXIS
     Dates: start: 20090414
  4. VIT B12 [Concomitant]
     Indication: PROPHYLAXIS
     Dates: start: 20090414
  5. DEXAMETHASONE [Concomitant]
     Indication: PROPHYLAXIS
     Dates: start: 20090519
  6. PANTOPRAZOLE SODIUM [Concomitant]
     Indication: PROPHYLAXIS
     Dates: start: 20090414
  7. AMITRIPTYLINE HCL [Concomitant]
     Indication: ANXIETY
     Dates: start: 20090414
  8. SYMPAL [Concomitant]
     Indication: ARTHRALGIA
     Dates: start: 20081001

REACTIONS (2)
  - SYNCOPE [None]
  - VERTIGO [None]
